FAERS Safety Report 15700805 (Version 1)
Quarter: 2018Q4

REPORT INFORMATION
  Report Type: Report from Study
  Country: None (occurrence: CA)
  Receive Date: 20181207
  Receipt Date: 20181207
  Transmission Date: 20190205
  Serious: Yes (Other)
  Sender: FDA-Public Use
  Company Number: CA-ABBVIE-18K-028-2581899-00

PATIENT
  Sex: Male
  Weight: 46.76 kg

DRUGS (1)
  1. HUMIRA [Suspect]
     Active Substance: ADALIMUMAB
     Indication: CROHN^S DISEASE
     Route: 058

REACTIONS (3)
  - Dental caries [Unknown]
  - Intestinal perforation [Recovered/Resolved]
  - Tooth discolouration [Unknown]

NARRATIVE: CASE EVENT DATE: 2015
